FAERS Safety Report 12167970 (Version 6)
Quarter: 2016Q1

REPORT INFORMATION
  Report Type: Spontaneous
  Country: DE (occurrence: DE)
  Receive Date: 20160310
  Receipt Date: 20160317
  Transmission Date: 20160526
  Serious: Yes (Hospitalization, Other)
  Sender: FDA-Public Use
  Company Number: DE-ACTAVIS-2016-05212

PATIENT
  Age: 29 Year
  Sex: Female

DRUGS (7)
  1. QUETIAPINE (UNKNOWN) [Suspect]
     Active Substance: QUETIAPINE
     Indication: THERAPY CESSATION
     Dosage: 25 MG, QID
     Route: 065
  2. BUPROPION. [Suspect]
     Active Substance: BUPROPION
     Indication: DEPRESSION
     Dosage: 300 MG, DAILY( FOR 3-4 MONTHS)
     Route: 048
  3. PREGABALIN (UNKNOWN) [Suspect]
     Active Substance: PREGABALIN
     Indication: CONVULSION PROPHYLAXIS
     Dosage: 300 MG, DAILY
     Route: 048
  4. BUPROPION. [Suspect]
     Active Substance: BUPROPION
     Indication: DRUG ABUSE
     Dosage: 450 MG, DAILY
     Route: 048
  5. PREGABALIN (UNKNOWN) [Suspect]
     Active Substance: PREGABALIN
     Indication: DRUG ABUSE
     Dosage: 2400 TO 3600 MG/DAY
     Route: 048
  6. BUPROPION. [Suspect]
     Active Substance: BUPROPION
     Dosage: 2400 MG, TOTAL( 8X 300 MG TABLETS)
     Route: 042
  7. RIVAROXABAN [Concomitant]
     Active Substance: RIVAROXABAN
     Indication: THROMBOSIS
     Dosage: UNK
     Route: 065

REACTIONS (12)
  - Psychomotor hyperactivity [Recovered/Resolved]
  - Delusion [Recovered/Resolved]
  - Myalgia [Recovered/Resolved]
  - Incorrect route of drug administration [Recovered/Resolved]
  - Restless legs syndrome [Recovered/Resolved]
  - Affect lability [Recovered/Resolved]
  - Drug abuse [Recovered/Resolved]
  - Intentional overdose [Recovered/Resolved]
  - Drug withdrawal syndrome [Recovered/Resolved]
  - Seizure [Recovered/Resolved]
  - Transaminases increased [Recovered/Resolved]
  - Increased appetite [Recovered/Resolved]
